FAERS Safety Report 6264546-6 (Version None)
Quarter: 2009Q3

REPORT INFORMATION
  Report Type: 
  Country: None (occurrence: None)
  Receive Date: 20090710
  Receipt Date: 20090701
  Transmission Date: 20100115
  Serious: Yes (Hospitalization, Other)
  Sender: FDA-Public Use
  Company Number: AU-WYE-G03959709

PATIENT
  Sex: Male

DRUGS (2)
  1. EFFEXOR [Suspect]
     Indication: DEPRESSION
  2. AURORIX [Interacting]
     Indication: DEPRESSION

REACTIONS (5)
  - ALCOHOL ABUSE [None]
  - DRUG ABUSE [None]
  - DRUG INTERACTION [None]
  - EUPHORIC MOOD [None]
  - NONSPECIFIC REACTION [None]
